FAERS Safety Report 9296405 (Version 2)
Quarter: 2013Q4

REPORT INFORMATION
  Report Type: Spontaneous
  Country: DE (occurrence: DE)
  Receive Date: 20130517
  Receipt Date: 20131211
  Transmission Date: 20140711
  Serious: Yes (Death, Life-Threatening, Hospitalization)
  Sender: FDA-Public Use
  Company Number: DE-B.I. PHARMACEUTICALS,INC./RIDGEFIELD-2013-DE-00504DE

PATIENT
  Age: 79 Year
  Sex: Female

DRUGS (8)
  1. DABIGATRAN [Suspect]
     Indication: ATRIAL FIBRILLATION
     Dosage: 220 MG
     Route: 048
  2. ACICLOVIR [Concomitant]
     Indication: PLASMA CELL MYELOMA
     Dosage: 400 MG
     Route: 048
     Dates: end: 20130102
  3. COTRIM FORTE [Concomitant]
     Indication: PLASMA CELL MYELOMA
     Dosage: 960 MG
     Route: 048
  4. ZOLEDRONIC ACID [Concomitant]
     Indication: PLASMA CELL MYELOMA
     Route: 042
     Dates: end: 20130102
  5. PANTOZOL [Concomitant]
     Indication: PLASMA CELL MYELOMA
     Dosage: 40 MG
     Route: 048
  6. BISOPROLOL [Concomitant]
     Indication: PLASMA CELL MYELOMA
     Dosage: 1.25 MG
     Route: 048
     Dates: end: 20130102
  7. ALLOPURINOL [Concomitant]
     Indication: PLASMA CELL MYELOMA
     Dosage: 100 MG
     Route: 048
     Dates: end: 20130102
  8. CHEMOTHERAPY [Concomitant]
     Indication: PLASMA CELL MYELOMA
     Dates: end: 20121223

REACTIONS (9)
  - Sepsis [Fatal]
  - Leukopenia [Fatal]
  - Multi-organ failure [Fatal]
  - Gastrointestinal haemorrhage [Recovered/Resolved]
  - Melaena [Recovered/Resolved]
  - Haematochezia [Recovered/Resolved]
  - Skin haemorrhage [Recovered/Resolved]
  - Overdose [Unknown]
  - Laboratory test interference [Unknown]
